FAERS Safety Report 23032956 (Version 1)
Quarter: 2023Q4

REPORT INFORMATION
  Report Type: Other
  Country: US (occurrence: None)
  Receive Date: 20231005
  Receipt Date: 20231005
  Transmission Date: 20240109
  Serious: No
  Sender: FDA-Public Use
  Company Number: US-ROCHE-3433010

PATIENT
  Age: 35 Year
  Sex: Female

DRUGS (1)
  1. OCREVUS [Suspect]
     Active Substance: OCRELIZUMAB
     Indication: Relapsing multiple sclerosis
     Dosage: IV INFUSION 300MG DAY 0 THEN DAY 15, IV INFUSION 600MG Q 6 MONTHS?NEW INFUSION DATE: 07/OCT/2023
     Route: 042

REACTIONS (1)
  - COVID-19 [Unknown]
